FAERS Safety Report 8963729 (Version 1)
Quarter: 2012Q4

REPORT INFORMATION
  Report Type: 
  Country: AU (occurrence: AU)
  Receive Date: 20121214
  Receipt Date: 20121214
  Transmission Date: 20130627
  Serious: Yes (Disabling)
  Sender: FDA-Public Use
  Company Number: AU-SANOFI-AVENTIS-2012SA084542

PATIENT
  Age: 73 Year
  Sex: Male
  Weight: 66 kg

DRUGS (4)
  1. ANANDRON [Suspect]
     Indication: PROSTATE CANCER
     Route: 065
     Dates: start: 20111005, end: 201203
  2. ZOLADEX [Concomitant]
     Indication: PROSTATE CANCER
  3. COSUDEX [Concomitant]
     Indication: PROSTATE CANCER
  4. XGEVA [Concomitant]

REACTIONS (5)
  - Mood altered [Unknown]
  - Asthenia [Unknown]
  - Gait disturbance [Unknown]
  - Dyspnoea [Recovered/Resolved]
  - Condition aggravated [Recovered/Resolved]
